FAERS Safety Report 7610352-7 (Version None)
Quarter: 2011Q3

REPORT INFORMATION
  Report Type: 
  Country: None (occurrence: None)
  Receive Date: 20110715
  Receipt Date: 20100803
  Transmission Date: 20111222
  Serious: No
  Sender: FDA-Public Use
  Company Number: A0874007A

PATIENT
  Sex: Male

DRUGS (2)
  1. OLUX [Suspect]
     Route: 061
  2. NO CONCURRENT MEDICATION [Concomitant]

REACTIONS (2)
  - APPLICATION SITE REACTION [None]
  - ALOPECIA [None]
